FAERS Safety Report 18738907 (Version 3)
Quarter: 2021Q1

REPORT INFORMATION
  Report Type: Spontaneous
  Country: US (occurrence: US)
  Receive Date: 20210114
  Receipt Date: 20210210
  Transmission Date: 20210419
  Serious: No
  Sender: FDA-Public Use
  Company Number: US-BIOVITRUM-2021US0253

PATIENT
  Age: 24 Year
  Sex: Male

DRUGS (1)
  1. KINERET [Suspect]
     Active Substance: ANAKINRA
     Indication: COMPLEMENT FACTOR DECREASED
     Dates: start: 20201115

REACTIONS (6)
  - Injection site erythema [Unknown]
  - Injection site pain [Not Recovered/Not Resolved]
  - Injection site rash [Recovering/Resolving]
  - Off label use [Unknown]
  - Injection site pruritus [Unknown]
  - Nausea [Recovering/Resolving]

NARRATIVE: CASE EVENT DATE: 20201115
